FAERS Safety Report 17834661 (Version 1)
Quarter: 2020Q2

REPORT INFORMATION
  Report Type: Spontaneous
  Country: US (occurrence: US)
  Receive Date: 20200527
  Receipt Date: 20200527
  Transmission Date: 20200714
  Serious: Yes (Other)
  Sender: FDA-Public Use
  Company Number: None

PATIENT
  Sex: Male
  Weight: 80.74 kg

DRUGS (8)
  1. FAMOTIDINE. [Concomitant]
     Active Substance: FAMOTIDINE
  2. ZANTAC [Suspect]
     Active Substance: RANITIDINE HYDROCHLORIDE
     Indication: DYSPEPSIA
     Route: 048
     Dates: start: 2015, end: 201912
  3. NAPROXEN. [Concomitant]
     Active Substance: NAPROXEN
  4. OMEPRAZOLE. [Concomitant]
     Active Substance: OMEPRAZOLE
  5. ISOSORBIDE. [Concomitant]
     Active Substance: ISOSORBIDE
  6. ZANTAC [Suspect]
     Active Substance: RANITIDINE HYDROCHLORIDE
     Indication: HERNIA
     Route: 048
     Dates: start: 2015, end: 201912
  7. LISINOPRIL. [Concomitant]
     Active Substance: LISINOPRIL
  8. METHOCARBOMOL [Concomitant]
     Active Substance: METHOCARBAMOL

REACTIONS (5)
  - Chest pain [None]
  - Vomiting [None]
  - Haematemesis [None]
  - Nausea [None]
  - Oesophageal pain [None]
